FAERS Safety Report 7347158-2 (Version None)
Quarter: 2011Q1

REPORT INFORMATION
  Report Type: 
  Country: None (occurrence: None)
  Receive Date: 20110311
  Receipt Date: 20110307
  Transmission Date: 20110831
  Serious: Yes (Hospitalization, Other)
  Sender: FDA-Public Use
  Company Number: CA-PFIZER INC-2011049541

PATIENT
  Sex: Male

DRUGS (3)
  1. BENZODIAZEPINE DERIVATIVES [Concomitant]
     Indication: BIPOLAR DISORDER
     Dosage: UNK
  2. ANTIPSYCHOTICS [Concomitant]
     Dosage: UNK
  3. EFFEXOR XR [Suspect]
     Dosage: UNK
     Dates: start: 20070101

REACTIONS (4)
  - INTENTIONAL DRUG MISUSE [None]
  - ANXIETY [None]
  - PANIC ATTACK [None]
  - DRUG DEPENDENCE [None]
